FAERS Safety Report 6409479-7 (Version None)
Quarter: 2009Q4

REPORT INFORMATION
  Report Type: 
  Country: None (occurrence: None)
  Receive Date: 20091016
  Receipt Date: 20091001
  Transmission Date: 20100525
  Serious: Yes (Hospitalization)
  Sender: FDA-Public Use
  Company Number: KV200800377

PATIENT
  Age: 78 Year
  Sex: Male
  Weight: 74.8 kg

DRUGS (7)
  1. MORPHINE SULFATE [Suspect]
     Indication: SPINAL COLUMN STENOSIS
     Dosage: 30 MG, TID, ORAL
     Route: 048
     Dates: start: 20080901, end: 20081001
  2. MORPHINE SULFATE [Suspect]
     Indication: BACK PAIN
     Dosage: 30 MG, BID, ORAL
     Route: 048
     Dates: start: 20081201
  3. LOPRESSOR [Concomitant]
  4. COUMADIN [Concomitant]
  5. AMITRIPTYLINE HYDROCHLORIDE [Concomitant]
  6. ADVAIR DISKUS 100/50 [Concomitant]
  7. PERCOCET [Concomitant]

REACTIONS (28)
  - ANXIETY [None]
  - ARTERIOSCLEROSIS CORONARY ARTERY [None]
  - ASTHENIA [None]
  - BLOOD LACTATE DEHYDROGENASE INCREASED [None]
  - BRADYARRHYTHMIA [None]
  - BRONCHIECTASIS [None]
  - DEEP VEIN THROMBOSIS [None]
  - DIZZINESS [None]
  - DYSPNOEA [None]
  - DYSTHYMIC DISORDER [None]
  - GENERAL PHYSICAL HEALTH DETERIORATION [None]
  - HAEMATOMA [None]
  - HYPERCHOLESTEROLAEMIA [None]
  - HYPOTENSION [None]
  - HYPOXIA [None]
  - INSOMNIA [None]
  - LUNG DISORDER [None]
  - MITRAL VALVE DISEASE [None]
  - NEPHROLITHIASIS [None]
  - RENAL FAILURE CHRONIC [None]
  - RENAL HAEMATOMA [None]
  - RETROPERITONEAL HAEMORRHAGE [None]
  - SEDATION [None]
  - SOMNOLENCE [None]
  - SPINAL OSTEOARTHRITIS [None]
  - TRANSAMINASES INCREASED [None]
  - TRICUSPID VALVE DISEASE [None]
  - VENOUS INSUFFICIENCY [None]
